FAERS Safety Report 18260384 (Version 1)
Quarter: 2020Q3

REPORT INFORMATION
  Report Type: Other
  Country: CN (occurrence: CN)
  Receive Date: 20200914
  Receipt Date: 20200914
  Transmission Date: 20201103
  Serious: Yes (Other)
  Sender: FDA-Public Use
  Company Number: CN-ROCHE-2056728

PATIENT
  Age: 65 Year
  Sex: Female
  Weight: 50 kg

DRUGS (2)
  1. AVASTIN [Suspect]
     Active Substance: BEVACIZUMAB
     Indication: GASTROINTESTINAL CARCINOMA
     Route: 041
     Dates: start: 20200831
  2. AVASTIN [Suspect]
     Active Substance: BEVACIZUMAB
     Indication: RECTAL CANCER
     Route: 041
     Dates: start: 20170814, end: 20200616

REACTIONS (23)
  - Renal impairment [Unknown]
  - Swelling face [Unknown]
  - Nasopharyngitis [Unknown]
  - Pyrexia [Unknown]
  - Intra-abdominal fluid collection [Unknown]
  - Tumour compression [Unknown]
  - Infection [Unknown]
  - Face oedema [Unknown]
  - Urinary tract infection [Unknown]
  - Haematoma [Unknown]
  - Perinephric abscess [Recovered/Resolved]
  - Asthenia [Unknown]
  - Paracentesis [Unknown]
  - Renal haemorrhage [Unknown]
  - Haematuria [Unknown]
  - Inflammation [Unknown]
  - Pyrexia [Unknown]
  - Peripheral swelling [Unknown]
  - Renal hydrocele [Unknown]
  - Renal abscess [Unknown]
  - Cough [Unknown]
  - Fistula repair [Unknown]
  - Pyrexia [Recovered/Resolved]

NARRATIVE: CASE EVENT DATE: 20190318
